APPROVED DRUG PRODUCT: DESOXIMETASONE
Active Ingredient: DESOXIMETASONE
Strength: 0.25%
Dosage Form/Route: OINTMENT;TOPICAL
Application: A202838 | Product #001
Applicant: GLENMARK PHARMACEUTICALS LTD
Approved: Sep 20, 2013 | RLD: No | RS: No | Type: DISCN